FAERS Safety Report 8529493 (Version 7)
Quarter: 2013Q3

REPORT INFORMATION
  Report Type: Report from Study
  Country: JP (occurrence: JP)
  Receive Date: 20120425
  Receipt Date: 20130822
  Transmission Date: 20140515
  Serious: Yes (Hospitalization, Other)
  Sender: FDA-Public Use
  Company Number: JP-ROCHE-1061920

PATIENT
  Age: 60 Year
  Sex: Male
  Weight: 57.4 kg

DRUGS (5)
  1. PEG-INTERFERON ALFA 2A [Suspect]
     Indication: CHRONIC HEPATITIS C
     Route: 058
     Dates: start: 20120229
  2. RIBAVIRIN [Suspect]
     Indication: CHRONIC HEPATITIS C
     Route: 048
     Dates: start: 20120229
  3. BI 201335 [Suspect]
     Indication: CHRONIC HEPATITIS C
     Dosage: DOSE REDUCED
     Route: 048
     Dates: start: 20120229, end: 20120413
  4. BI 201335 [Suspect]
     Route: 048
     Dates: start: 20120414
  5. FUNGIZONE [Suspect]
     Indication: PRODUCT USED FOR UNKNOWN INDICATION
     Route: 065
     Dates: start: 20120412, end: 20120413

REACTIONS (5)
  - Diarrhoea [Recovered/Resolved]
  - Decreased appetite [Recovered/Resolved]
  - Oral fungal infection [Recovered/Resolved]
  - Erythema multiforme [Not Recovered/Not Resolved]
  - Drug reaction with eosinophilia and systemic symptoms [Unknown]
